FAERS Safety Report 9814690 (Version 1)
Quarter: 2014Q1

REPORT INFORMATION
  Report Type: Spontaneous
  Country: US (occurrence: US)
  Receive Date: 20140113
  Receipt Date: 20140113
  Transmission Date: 20141002
  Serious: Yes (Hospitalization, Other)
  Sender: FDA-Public Use
  Company Number: US-SANOFI-AVENTIS-2012SA089850

PATIENT
  Age: 69 Year
  Sex: Female
  Weight: 59 kg

DRUGS (17)
  1. TAXOTERE [Suspect]
     Indication: OVARIAN CANCER
     Route: 041
  2. TAXOTERE [Suspect]
     Indication: OVARIAN CANCER
     Route: 041
  3. PARAPLATIN AQ [Suspect]
     Indication: OVARIAN CANCER
     Route: 065
  4. PARAPLATIN AQ [Suspect]
     Indication: OVARIAN CANCER
     Route: 065
  5. TAXOL [Suspect]
     Indication: OVARIAN CANCER
     Route: 065
  6. TAXOL [Suspect]
     Indication: OVARIAN CANCER
     Route: 065
  7. HUMIRA [Suspect]
     Indication: MYALGIA
     Route: 065
     Dates: end: 201112
  8. HUMIRA [Suspect]
     Indication: MYALGIA
     Route: 065
     Dates: start: 201209
  9. OXYCODONE [Concomitant]
     Indication: PAIN
  10. TRIAMTERENE [Concomitant]
  11. PREDNISONE [Concomitant]
  12. ROSUVASTATIN CALCIUM [Concomitant]
  13. VITAMIN B COMPLEX [Concomitant]
  14. VITAMIN D [Concomitant]
  15. LYRICA [Concomitant]
  16. GABAPENTIN [Concomitant]
  17. PROZAC [Concomitant]

REACTIONS (14)
  - Malaise [Unknown]
  - Ovarian cancer [Unknown]
  - Abdominal discomfort [Recovered/Resolved]
  - Back pain [Recovered/Resolved]
  - Musculoskeletal pain [Unknown]
  - Breast pain [Unknown]
  - Musculoskeletal stiffness [Unknown]
  - Memory impairment [Unknown]
  - Pain in extremity [Unknown]
  - Local swelling [Unknown]
  - Neuropathy peripheral [Unknown]
  - Arthralgia [Unknown]
  - Pain [Unknown]
  - Myalgia [Unknown]
